FAERS Safety Report 21374471 (Version 3)
Quarter: 2023Q2

REPORT INFORMATION
  Report Type: Report from Study
  Country: CA (occurrence: CA)
  Receive Date: 20220926
  Receipt Date: 20230504
  Transmission Date: 20230722
  Serious: Yes (Hospitalization, Other)
  Sender: FDA-Public Use
  Company Number: CA-JNJFOC-20220912335

PATIENT
  Age: 78 Year
  Sex: Male

DRUGS (1)
  1. REMICADE [Suspect]
     Active Substance: INFLIXIMAB
     Indication: Pyoderma gangrenosum
     Dosage: THE PATIENT HAD CANCELLED 07-SEP-2022 APPOINTMENT, AND RESCHEDULED TO 21-SEP-2022. PATIENT TOOK INFU
     Route: 042
     Dates: start: 20220819

REACTIONS (5)
  - Pneumonia [Unknown]
  - Pyoderma [Recovered/Resolved]
  - Orchidectomy [Recovered/Resolved]
  - Diarrhoea [Unknown]
  - Nausea [Unknown]

NARRATIVE: CASE EVENT DATE: 20220101
